FAERS Safety Report 7094349-4 (Version None)
Quarter: 2010Q4

REPORT INFORMATION
  Report Type: 
  Country: None (occurrence: None)
  Receive Date: 20101102
  Receipt Date: 20101020
  Transmission Date: 20110411
  Serious: Yes (Other)
  Sender: FDA-Public Use
  Company Number: 2006JP005130

PATIENT
  Age: 10 Year
  Sex: Male
  Weight: 27.8 kg

DRUGS (8)
  1. PROGRAF [Suspect]
     Indication: BONE MARROW TRANSPLANT
     Dosage: 0.03 MG/KG, /D
     Dates: start: 20051201
  2. PROGRAF [Suspect]
     Indication: BONE MARROW TRANSPLANT
     Dosage: ORAL
     Route: 048
     Dates: end: 20061219
  3. CYCLOPHOSPHAMIDE [Suspect]
     Indication: BONE MARROW TRANSPLANT
     Dosage: 10 MG/KG, UID/QD, IV NOS
     Route: 042
     Dates: start: 20051127, end: 20051130
  4. PREDNISOLONE [Concomitant]
     Indication: BONE MARROW TRANSPLANT
     Dosage: 2 MG/KG, /D, IV NOS
     Route: 042
     Dates: start: 20051128
  5. PREDNISOLONE [Suspect]
     Indication: BONE MARROW TRANSPLANT
     Dosage: ORAL
     Route: 048
  6. FLUDARABINE PHOSPHATE [Concomitant]
  7. ANTI-THYMOCYTE GLOBULIN NOS [Concomitant]
  8. METHOTREXATE [Concomitant]

REACTIONS (4)
  - CYSTITIS HAEMORRHAGIC [None]
  - CYTOMEGALOVIRUS INFECTION [None]
  - HYPERTENSION [None]
  - REVERSIBLE POSTERIOR LEUKOENCEPHALOPATHY SYNDROME [None]
